FAERS Safety Report 6757601-5 (Version None)
Quarter: 2010Q2

REPORT INFORMATION
  Report Type: 
  Country: None (occurrence: None)
  Receive Date: 20100607
  Receipt Date: 20100521
  Transmission Date: 20101027
  Serious: No
  Sender: FDA-Public Use
  Company Number: US-B.I. PHARMACEUTICALS,INC./RIDGEFIELD-2010-BP-05773BP

PATIENT
  Age: 80 Year
  Sex: Female

DRUGS (1)
  1. MIRAPEX [Suspect]
     Indication: PARKINSON'S DISEASE
     Dosage: 1.125 MG
     Route: 048
     Dates: start: 20100521

REACTIONS (2)
  - MOVEMENT DISORDER [None]
  - MUSCULOSKELETAL STIFFNESS [None]
